FAERS Safety Report 21803951 (Version 1)
Quarter: 2023Q1

REPORT INFORMATION
  Report Type: Report from Study
  Country: US (occurrence: US)
  Receive Date: 20230102
  Receipt Date: 20230102
  Transmission Date: 20230417
  Serious: No
  Sender: FDA-Public Use
  Company Number: US-ABBVIE-4209279

PATIENT
  Age: 44 Year
  Sex: Male

DRUGS (3)
  1. SKYRIZI [Suspect]
     Active Substance: RISANKIZUMAB-RZAA
     Indication: Psoriasis
     Dosage: STRENGTH: 150 MG, WEEK 0
     Route: 058
     Dates: start: 202109, end: 202109
  2. SKYRIZI [Suspect]
     Active Substance: RISANKIZUMAB-RZAA
     Dosage: STRENGTH: 150 MG, WEEK 4
     Route: 058
     Dates: start: 2021, end: 2021
  3. SKYRIZI [Suspect]
     Active Substance: RISANKIZUMAB-RZAA
     Dosage: STRENGTH: 150 MG
     Route: 058

REACTIONS (4)
  - Pain [Unknown]
  - Psoriasis [Unknown]
  - Pruritus [Unknown]
  - Therapeutic response shortened [Unknown]

NARRATIVE: CASE EVENT DATE: 20221117
